FAERS Safety Report 7279517-0 (Version None)
Quarter: 2011Q1

REPORT INFORMATION
  Report Type: 
  Country: None (occurrence: None)
  Receive Date: 20110208
  Receipt Date: 20110126
  Transmission Date: 20110831
  Serious: No
  Sender: FDA-Public Use
  Company Number: US-BIOGENIDEC-2011BI003784

PATIENT
  Sex: Female

DRUGS (1)
  1. TYSABRI [Suspect]
     Indication: MULTIPLE SCLEROSIS
     Route: 042
     Dates: start: 20070626, end: 20071115

REACTIONS (6)
  - MOBILITY DECREASED [None]
  - MULTIPLE SCLEROSIS [None]
  - HEMIPLEGIA [None]
  - MUSCLE SPASMS [None]
  - MICTURITION URGENCY [None]
  - BACK PAIN [None]
